FAERS Safety Report 8208134-0 (Version None)
Quarter: 2012Q1

REPORT INFORMATION
  Report Type: 
  Country: None (occurrence: None)
  Receive Date: 20120314
  Receipt Date: 20120307
  Transmission Date: 20120608
  Serious: Yes (Other)
  Sender: FDA-Public Use
  Company Number: PHHY2012NL020205

PATIENT
  Age: 38 Year
  Sex: Female

DRUGS (3)
  1. ZOMETA [Suspect]
     Dosage: UNK UKN, ONCE EVERY 6 WEEKS
     Route: 042
  2. NIOXIN [Concomitant]
  3. HERCEPTIN [Concomitant]
     Dosage: UNK UKN, ONCE EVERY 3 WEEKS

REACTIONS (4)
  - HEADACHE [None]
  - DIZZINESS [None]
  - VOMITING [None]
  - METASTASES TO CENTRAL NERVOUS SYSTEM [None]
